FAERS Safety Report 9736341 (Version 1)
Quarter: 2013Q4

REPORT INFORMATION
  Report Type: Spontaneous
  Country: US (occurrence: None)
  Receive Date: 20131204
  Receipt Date: 20131204
  Transmission Date: 20140711
  Serious: Yes (Death)
  Sender: FDA-Public Use
  Company Number: US-ALKEM-000302

PATIENT
  Age: 65 Year
  Sex: Male

DRUGS (7)
  1. GABAPENTIN [Suspect]
     Route: 048
  2. ACETAMINOPHEN W/CODEINE [Suspect]
     Route: 048
  3. METOPROLOL [Suspect]
     Route: 048
  4. SIMVASTATIN [Suspect]
     Route: 048
  5. ESCITALOPRAM [Suspect]
  6. QUETIAPINE [Suspect]
     Route: 048
  7. ESZOPICLONE [Suspect]

REACTIONS (3)
  - Overdose [None]
  - Completed suicide [None]
  - Exposure via ingestion [None]
